FAERS Safety Report 9902761 (Version 2)
Quarter: 2014Q1

REPORT INFORMATION
  Report Type: Spontaneous
  Country: IT (occurrence: IT)
  Receive Date: 20140217
  Receipt Date: 20140224
  Transmission Date: 20141002
  Serious: Yes (Hospitalization)
  Sender: FDA-Public Use
  Company Number: PHHY2014IT018173

PATIENT
  Age: 75 Year
  Sex: Female

DRUGS (7)
  1. TEGRETOL [Suspect]
     Indication: EPILEPSY
     Dosage: 1 DF (1 POSOLOGICAL UNIT), DAILY
     Route: 048
     Dates: start: 20130101, end: 20140111
  2. TEGRETOL [Suspect]
     Dosage: UNK UKN, UNK
     Route: 048
  3. VENLAFAXINE [Concomitant]
     Dosage: UNK UKN, UNK
     Route: 048
  4. TAVOR (LORAZEPAM) [Concomitant]
     Dosage: UNK UKN, UNK
     Route: 048
  5. CARDIOASPIRIN [Concomitant]
     Dosage: UNK UKN, UNK
     Route: 048
  6. TRITTICO [Concomitant]
     Dosage: UNK UKN, UNK
     Route: 048
  7. DALMADORM [Concomitant]
     Dosage: UNK UKN, UNK
     Route: 048

REACTIONS (3)
  - Respiratory failure [Unknown]
  - Confusional state [Unknown]
  - Hyponatraemia [Unknown]
